FAERS Safety Report 9127074 (Version 1)
Quarter: 2013Q1

REPORT INFORMATION
  Report Type: Spontaneous
  Country: US (occurrence: US)
  Receive Date: 20130125
  Receipt Date: 20130125
  Transmission Date: 20140127
  Serious: Yes (Other)
  Sender: FDA-Public Use
  Company Number: US-RB-048726-13

PATIENT
  Sex: Female

DRUGS (3)
  1. MUCINEX DM [Suspect]
     Indication: PRODUCT USED FOR UNKNOWN INDICATION
     Route: 048
  2. MUCINEX DM (DEXTROMETHORPHAN HYDROBROMIDE) [Suspect]
  3. XANAX [Concomitant]
     Indication: ANXIETY DISORDER

REACTIONS (2)
  - Anxiety [Unknown]
  - Insomnia [Unknown]
